FAERS Safety Report 25785929 (Version 1)
Quarter: 2025Q3

REPORT INFORMATION
  Report Type: Spontaneous
  Country: ZA (occurrence: ZA)
  Receive Date: 20250910
  Receipt Date: 20250910
  Transmission Date: 20251020
  Serious: Yes (Death, Other)
  Sender: ALEXION PHARMACEUTICALS
  Company Number: ZA-ASTRAZENECA-23ZA0000907

PATIENT
  Age: 78 Year

DRUGS (10)
  1. DAPAGLIFLOZIN [Suspect]
     Active Substance: DAPAGLIFLOZIN
  2. TORSEMIDE [Concomitant]
     Active Substance: TORSEMIDE
  3. ALLOPURINOL [Concomitant]
     Active Substance: ALLOPURINOL
  4. SACUBITRIL\VALSARTAN [Concomitant]
     Active Substance: SACUBITRIL\VALSARTAN
  5. COLCHICINE [Concomitant]
     Active Substance: COLCHICINE
  6. VILDAGLIPTIN [Concomitant]
     Active Substance: VILDAGLIPTIN
  7. ROSUVASTATIN [Concomitant]
     Active Substance: ROSUVASTATIN
  8. XARELTO [Concomitant]
     Active Substance: RIVAROXABAN
  9. IVABRADINE HYDROCHLORIDE [Concomitant]
     Active Substance: IVABRADINE HYDROCHLORIDE
  10. TORSEMIDE [Concomitant]
     Active Substance: TORSEMIDE

REACTIONS (1)
  - Death [Fatal]
